FAERS Safety Report 7965809-6 (Version None)
Quarter: 2011Q4

REPORT INFORMATION
  Report Type: 
  Country: None (occurrence: None)
  Receive Date: 20111208
  Receipt Date: 20111202
  Transmission Date: 20120403
  Serious: Yes (Other)
  Sender: FDA-Public Use
  Company Number: NL-ABBOTT-11P-114-0880396-00

PATIENT
  Sex: Female
  Weight: 52 kg

DRUGS (3)
  1. HUMIRA [Suspect]
     Indication: CROHN'S DISEASE
     Route: 058
     Dates: start: 20110201, end: 20110601
  2. HUMIRA [Suspect]
     Route: 058
     Dates: start: 20110601
  3. ETHINYLESTRADIOL/LEVONORGESTREL TABLET [Concomitant]
     Indication: CONTRACEPTION
     Dosage: 30/150 MG DAILY FOR 3 WEEKS, SKIP WEEK 4
     Route: 048

REACTIONS (4)
  - EPILEPSY [None]
  - INJECTION SITE REACTION [None]
  - LOSS OF CONSCIOUSNESS [None]
  - WOUND [None]
